FAERS Safety Report 4986451-5 (Version None)
Quarter: 2006Q2

REPORT INFORMATION
  Report Type: 
  Country: None (occurrence: None)
  Receive Date: 20060424
  Receipt Date: 20060413
  Transmission Date: 20061013
  Serious: Yes (Other)
  Sender: FDA-Public Use
  Company Number: 200610430GDS

PATIENT
  Age: 78 Year
  Sex: Male

DRUGS (16)
  1. CIPROFLOXACIN HCL [Suspect]
     Indication: WHITE BLOOD CELL COUNT INCREASED
     Dosage: 500 MG, TOTAL DAILY, ORAL
     Route: 048
     Dates: start: 20040615, end: 20040617
  2. ACETAMINOPHEN [Concomitant]
  3. AMITRIPTYLINE HCL [Concomitant]
  4. CLINDAMYCIN [Concomitant]
  5. FERROUS SULFATE TAB [Concomitant]
  6. FLOMAX (TAMSULOCIN HCL) [Concomitant]
  7. FOLIC ACID [Concomitant]
  8. HYDROXYUREA [Concomitant]
  9. LIPID N.O.S. [Concomitant]
  10. LOSEC [Concomitant]
  11. METOCLOPRAMIDE [Concomitant]
  12. METOPROLOL [Concomitant]
  13. SALBUTAMOL [Concomitant]
  14. SENOKOT [Concomitant]
  15. TPN (TOTAL PARENTERAL NUTRITION) [Concomitant]
  16. ZOPICLONE [Concomitant]

REACTIONS (1)
  - METABOLIC ACIDOSIS [None]
